FAERS Safety Report 17563090 (Version 1)
Quarter: 2020Q1

REPORT INFORMATION
  Report Type: Spontaneous
  Country: US (occurrence: US)
  Receive Date: 20200320
  Receipt Date: 20200320
  Transmission Date: 20200409
  Serious: Yes (Other)
  Sender: FDA-Public Use
  Company Number: US-AUROBINDO-AUR-APL-2019-072901

PATIENT
  Age: 40 Year
  Sex: Female

DRUGS (4)
  1. AMPHETAMINE [Concomitant]
     Active Substance: AMPHETAMINE
     Indication: ATTENTION DEFICIT/HYPERACTIVITY DISORDER
     Dosage: UNK
     Route: 065
  2. LOPERAMIDE HYDROCHLORIDE TABLETS USP (OTC) [Suspect]
     Active Substance: LOPERAMIDE HYDROCHLORIDE
     Indication: PRODUCT USED FOR UNKNOWN INDICATION
     Dosage: 200 MILLIGRAM, ONCE A DAY (100 TABLETS DAILY OF 2MG)
     Route: 065
  3. HYDROCODONE [Suspect]
     Active Substance: HYDROCODONE
     Indication: MIGRAINE
     Dosage: UNK
     Route: 065
  4. ALPRAZOLAM. [Concomitant]
     Active Substance: ALPRAZOLAM
     Indication: ANXIETY
     Dosage: UNK
     Route: 065

REACTIONS (8)
  - Drug dependence [Unknown]
  - Irritability [Recovering/Resolving]
  - Drug abuse [Recovered/Resolved]
  - Restlessness [Recovering/Resolving]
  - Rhinorrhoea [Recovering/Resolving]
  - Mydriasis [Recovering/Resolving]
  - Withdrawal syndrome [Recovering/Resolving]
  - Overdose [Unknown]
